FAERS Safety Report 13305884 (Version 2)
Quarter: 2017Q1

REPORT INFORMATION
  Report Type: Spontaneous
  Country: JP (occurrence: JP)
  Receive Date: 20170308
  Receipt Date: 20170317
  Transmission Date: 20170428
  Serious: Yes (Other)
  Sender: FDA-Public Use
  Company Number: JP-009507513-1703JPN001563

PATIENT
  Age: 32 Year
  Sex: Female

DRUGS (1)
  1. DEXAMETHASONE. [Suspect]
     Active Substance: DEXAMETHASONE
     Indication: MATERNAL THERAPY TO ENHANCE FOETAL LUNG MATURITY
     Dosage: 12 MG, UNKNOWN
     Route: 030

REACTIONS (5)
  - Off label use [Unknown]
  - Premature baby [Unknown]
  - Low birth weight baby [Unknown]
  - Live birth [Unknown]
  - Exposure during pregnancy [Unknown]
